FAERS Safety Report 9356794 (Version 1)
Quarter: 2013Q2

REPORT INFORMATION
  Report Type: Spontaneous
  Country: US (occurrence: US)
  Receive Date: 20130619
  Receipt Date: 20130619
  Transmission Date: 20140414
  Serious: No
  Sender: FDA-Public Use
  Company Number: US-B.I. PHARMACEUTICALS,INC./RIDGEFIELD-2013-BI-16578BP

PATIENT
  Age: 6 Decade
  Sex: Female

DRUGS (3)
  1. COMBIVENT [Suspect]
     Indication: CHRONIC OBSTRUCTIVE PULMONARY DISEASE
     Route: 055
  2. SPIRIVA [Suspect]
  3. SYMBICORT [Suspect]

REACTIONS (3)
  - Palpitations [Recovered/Resolved]
  - Arrhythmia [Recovered/Resolved]
  - Blood pressure increased [Recovered/Resolved]
